FAERS Safety Report 4927814-3 (Version None)
Quarter: 2006Q1

REPORT INFORMATION
  Report Type: 
  Country: None (occurrence: None)
  Receive Date: 20060222
  Receipt Date: 20060216
  Transmission Date: 20060701
  Serious: Yes (Death)
  Sender: FDA-Public Use
  Company Number: 230583K06USA

PATIENT
  Age: 43 Year
  Sex: Female

DRUGS (3)
  1. REBIF [Suspect]
     Indication: MULTIPLE SCLEROSIS
     Dates: start: 20041129
  2. AMANTADINE HCL [Concomitant]
  3. MULTIVITAMINS (MULTIVITAMIN) [Concomitant]

REACTIONS (1)
  - MULTIPLE SCLEROSIS [None]
